FAERS Safety Report 4289959-3 (Version None)
Quarter: 2004Q1

REPORT INFORMATION
  Report Type: 
  Country: None (occurrence: None)
  Receive Date: 20040209
  Receipt Date: 20040113
  Transmission Date: 20041129
  Serious: Yes (Hospitalization)
  Sender: FDA-Public Use
  Company Number: BR-ROCHE-355750

PATIENT
  Age: 18 Year
  Sex: Male
  Weight: 61.2 kg

DRUGS (20)
  1. DACLIZUMAB [Suspect]
     Route: 042
     Dates: start: 20031016, end: 20031016
  2. DACLIZUMAB [Suspect]
     Route: 042
     Dates: start: 20031030, end: 20031211
  3. MYCOPHENOLATE MOFETIL [Suspect]
     Route: 048
     Dates: start: 20031216
  4. TACROLIMUS [Suspect]
     Route: 048
     Dates: start: 20031015
  5. TACROLIMUS [Suspect]
     Route: 048
     Dates: start: 20031022
  6. TACROLIMUS [Suspect]
     Route: 048
     Dates: start: 20031031
  7. TACROLIMUS [Suspect]
     Route: 048
     Dates: start: 20040119
  8. PREDNISONE [Suspect]
     Route: 048
     Dates: start: 20031015
  9. PREDNISONE [Suspect]
     Route: 048
     Dates: start: 20031110
  10. PREDNISONE [Suspect]
     Route: 048
     Dates: start: 20031113
  11. PREDNISONE [Suspect]
     Route: 048
     Dates: start: 20031118
  12. PREDNISONE [Suspect]
     Route: 048
     Dates: start: 20031127
  13. PREDNISONE [Suspect]
     Route: 048
     Dates: start: 20031204
  14. PREDNISONE [Suspect]
     Route: 048
     Dates: start: 20031211
  15. PREDNISONE [Suspect]
     Route: 048
     Dates: start: 20031230
  16. PREDNISONE [Suspect]
     Route: 048
     Dates: start: 20040106
  17. NIFEDIPINE [Concomitant]
     Route: 048
     Dates: start: 20031020
  18. TRIMETHOPRIM/SULPHAMETHOXAZOLE [Concomitant]
     Route: 048
     Dates: start: 20031019
  19. RANITIDINE [Concomitant]
     Route: 048
     Dates: start: 20031015
  20. PROPRANOLOL [Concomitant]
     Route: 048
     Dates: start: 20031019

REACTIONS (1)
  - CYTOMEGALOVIRUS INFECTION [None]
